FAERS Safety Report 6997461-0 (Version None)
Quarter: 2010Q3

REPORT INFORMATION
  Report Type: 
  Country: None (occurrence: None)
  Receive Date: 20100918
  Receipt Date: 20091015
  Transmission Date: 20110219
  Serious: No
  Sender: FDA-Public Use
  Company Number: US-WYE-H11624709

PATIENT
  Sex: Female
  Weight: 54.48 kg

DRUGS (2)
  1. PRISTIQ [Suspect]
     Indication: DEPRESSION
     Route: 048
     Dates: start: 20090908
  2. XANAX [Concomitant]
     Indication: ANXIETY
     Dosage: UNKNOWN PRN DOSE

REACTIONS (5)
  - AGITATION [None]
  - AKATHISIA [None]
  - CONDITION AGGRAVATED [None]
  - CRYING [None]
  - RESTLESSNESS [None]
